FAERS Safety Report 5030849-6 (Version None)
Quarter: 2006Q2

REPORT INFORMATION
  Report Type: 
  Country: None (occurrence: None)
  Receive Date: 20060619
  Receipt Date: 20060608
  Transmission Date: 20061013
  Serious: Yes (Hospitalization, Other)
  Sender: FDA-Public Use
  Company Number: 2006-06-0843

PATIENT
  Age: 33 Year
  Sex: Female
  Weight: 63 kg

DRUGS (5)
  1. INTERFERON ALFA [Suspect]
     Indication: HEPATITIS C
     Dates: start: 19990601, end: 20000601
  2. RIBAVIRIN [Suspect]
     Indication: HEPATITIS C
     Dates: start: 19990601, end: 20000601
  3. DESFERRIOXAMINE MESYLATE [Concomitant]
  4. ETHINYL ESTRADIOL TAB [Concomitant]
  5. GESTODENE AND [Concomitant]

REACTIONS (13)
  - BACK PAIN [None]
  - BLOOD IRON INCREASED [None]
  - BONE MARROW DISORDER [None]
  - CHEST X-RAY ABNORMAL [None]
  - CHOLELITHIASIS [None]
  - DYSPHAGIA [None]
  - EJECTION FRACTION DECREASED [None]
  - GASTROENTERITIS [None]
  - HAEMOGLOBIN DECREASED [None]
  - LEUKOPENIA [None]
  - MUSCULAR WEAKNESS [None]
  - NEURITIS [None]
  - SPINAL CORD NEOPLASM [None]
